FAERS Safety Report 10331849 (Version 1)
Quarter: 2014Q3

REPORT INFORMATION
  Report Type: Spontaneous
  Country: GB (occurrence: GB)
  Receive Date: 20140722
  Receipt Date: 20140722
  Transmission Date: 20150326
  Serious: Yes (Other)
  Sender: FDA-Public Use
  Company Number: GB-TEVA-493819ISR

PATIENT
  Age: 58 Year
  Sex: Female

DRUGS (7)
  1. OMEPRAZOLE. [Concomitant]
     Active Substance: OMEPRAZOLE
     Indication: PROPHYLAXIS
     Dosage: 20 MILLIGRAM DAILY;
  2. PARACETAMOL [Concomitant]
     Active Substance: ACETAMINOPHEN
     Dosage: QDS
     Route: 048
  3. ULTRAPROCT [Concomitant]
     Dosage: ONE TO BE INSERTED AFTER A BOWEL MOVEMENT
     Route: 054
  4. NAPROXEN. [Suspect]
     Active Substance: NAPROXEN
     Indication: ARTHRITIS
     Dosage: 1000 MILLIGRAM DAILY;
     Route: 048
     Dates: start: 2012
  5. VALGANCICLOVIR [Concomitant]
     Active Substance: VALGANCICLOVIR
     Dosage: 1000 MILLIGRAM DAILY;
     Route: 048
     Dates: start: 20140626, end: 20140630
  6. CODEINE [Concomitant]
     Active Substance: CODEINE
     Dosage: 30-60MG FOUR TIMES A DAY
     Route: 048
  7. PROCTOFOAM HC [Concomitant]
     Active Substance: HYDROCORTISONE ACETATE\PRAMOXINE HYDROCHLORIDE
     Dosage: TWICE A DAY AND AFTER BOWEL MOVEMENT. MAXIMUM FOUR TIMES A DAY.
     Route: 054

REACTIONS (5)
  - Gastrointestinal haemorrhage [Unknown]
  - Oral pain [Unknown]
  - Haematochezia [Unknown]
  - Dyspnoea exertional [Unknown]
  - Microcytic anaemia [Unknown]

NARRATIVE: CASE EVENT DATE: 2013
